FAERS Safety Report 9971571 (Version 2)
Quarter: 2014Q1

REPORT INFORMATION
  Report Type: Report from Study
  Country: US (occurrence: US)
  Receive Date: 20140306
  Receipt Date: 20140306
  Transmission Date: 20141002
  Serious: No
  Sender: FDA-Public Use
  Company Number: US-ABBVIE-13P-163-1135350-00

PATIENT
  Age: 52 Year
  Sex: Female
  Weight: 73.55 kg

DRUGS (3)
  1. HUMIRA [Suspect]
     Indication: PSORIATIC ARTHROPATHY
     Dates: end: 2011
  2. HUMIRA [Suspect]
     Route: 058
     Dates: start: 20130801
  3. HUMIRA [Suspect]
     Route: 058
     Dates: start: 20130801

REACTIONS (11)
  - Injection site mass [Recovered/Resolved]
  - Injection site erythema [Recovered/Resolved]
  - Injection site urticaria [Recovered/Resolved]
  - Injection site rash [Recovered/Resolved]
  - Injection site erythema [Not Recovered/Not Resolved]
  - Injection site bruising [Not Recovered/Not Resolved]
  - Injection site mass [Not Recovered/Not Resolved]
  - Injection site rash [Not Recovered/Not Resolved]
  - Injection site mass [Not Recovered/Not Resolved]
  - Injection site bruising [Not Recovered/Not Resolved]
  - Injection site pain [Not Recovered/Not Resolved]
